FAERS Safety Report 22111422 (Version 1)
Quarter: 2023Q1

REPORT INFORMATION
  Report Type: Report from Study
  Country: CZ (occurrence: CZ)
  Receive Date: 20230317
  Receipt Date: 20230317
  Transmission Date: 20230417
  Serious: Yes (Death)
  Sender: FDA-Public Use
  Company Number: CZ-ABBVIE-4344548

PATIENT
  Age: 70 Year
  Sex: Female

DRUGS (6)
  1. CARBIDOPA\LEVODOPA [Suspect]
     Active Substance: CARBIDOPA\LEVODOPA
     Indication: Parkinson^s disease
     Dosage: MORNING DOSE 6 ML, CONTINUOUS DOSE-DAY 3.9 ML/HOUR, CONTINUOUS DOSE-NIGHT 2.3 ML/HOUR
     Route: 050
     Dates: start: 20160613, end: 20230223
  2. CARBIDOPA\LEVODOPA [Suspect]
     Active Substance: CARBIDOPA\LEVODOPA
     Dosage: IN TOTAL 86.8 ML/24 HOURS
     Route: 050
     Dates: start: 20160613, end: 20230223
  3. DONEPEZIL [Concomitant]
     Active Substance: DONEPEZIL
     Indication: Product used for unknown indication
     Dosage: FREQUENCY TEXT: 0-0-1
     Route: 048
     Dates: start: 20210903, end: 20230223
  4. TIAPRIDE HYDROCHLORIDE [Concomitant]
     Active Substance: TIAPRIDE HYDROCHLORIDE
     Indication: Product used for unknown indication
     Dosage: FREQUENCY TEXT: 0-0-1-1
     Route: 048
     Dates: start: 20230104, end: 20230223
  5. EXELON [Concomitant]
     Active Substance: RIVASTIGMINE TARTRATE
     Indication: Product used for unknown indication
     Dosage: FREQUENCY TEXT: 1-0-1
     Route: 048
     Dates: start: 20230105, end: 20230223
  6. CITALOPRAM [Concomitant]
     Active Substance: CITALOPRAM HYDROBROMIDE
     Indication: Product used for unknown indication
     Dosage: FREQUENCY TEXT: 2-0-0
     Route: 048
     Dates: start: 20211203, end: 20230223

REACTIONS (1)
  - Death [Fatal]

NARRATIVE: CASE EVENT DATE: 20230223
